FAERS Safety Report 5449001-5 (Version None)
Quarter: 2007Q3

REPORT INFORMATION
  Report Type: 
  Country: None (occurrence: None)
  Receive Date: 20070803
  Receipt Date: 20070522
  Transmission Date: 20080115
  Serious: No
  Sender: FDA-Public Use
  Company Number: 200711616BWH

PATIENT
  Sex: Female
  Weight: 83.0083 kg

DRUGS (12)
  1. NEXAVAR [Suspect]
     Indication: RENAL CELL CARCINOMA STAGE UNSPECIFIED
     Dosage: SEE IMAGE
     Route: 048
     Dates: end: 20070508
  2. NEXAVAR [Suspect]
     Indication: RENAL CELL CARCINOMA STAGE UNSPECIFIED
     Dosage: SEE IMAGE
     Route: 048
     Dates: start: 20070207
  3. LANTUS [Concomitant]
  4. HYZAAR [Concomitant]
  5. NEXIUM [Concomitant]
  6. FLAXSEED OIL [Concomitant]
  7. CLONAZEPAM [Concomitant]
  8. NEURONTIN [Concomitant]
  9. DICYCLOMINE [Concomitant]
  10. ZETIA [Concomitant]
  11. ACTOS [Concomitant]
  12. AMARYL [Concomitant]

REACTIONS (13)
  - ALOPECIA [None]
  - ASTHENIA [None]
  - BLOOD GLUCOSE DECREASED [None]
  - DYSGEUSIA [None]
  - FATIGUE [None]
  - NAUSEA [None]
  - PAIN IN EXTREMITY [None]
  - RASH PRURITIC [None]
  - SKIN EXFOLIATION [None]
  - STOMATITIS [None]
  - TUMOUR PAIN [None]
  - VISUAL DISTURBANCE [None]
  - WEIGHT DECREASED [None]
